FAERS Safety Report 23472632 (Version 1)
Quarter: 2024Q1

REPORT INFORMATION
  Report Type: Spontaneous
  Country: US (occurrence: US)
  Receive Date: 20240202
  Receipt Date: 20240202
  Transmission Date: 20240409
  Serious: No
  Sender: FDA-Public Use
  Company Number: US-JNJFOC-20240136183

PATIENT
  Sex: Male

DRUGS (1)
  1. MENS ROGAINE EXTRA STRENGTH [Suspect]
     Active Substance: MINOXIDIL
     Indication: Alopecia
     Dosage: END OF 2020, BEGINNING OF 2021, A LITTLE MORE THAN A CAPFUL, SOMETIMES A LOT MORE THAN A CAPFUL
     Route: 065

REACTIONS (1)
  - Overdose [Unknown]
